FAERS Safety Report 5317073-4 (Version None)
Quarter: 2007Q2

REPORT INFORMATION
  Report Type: 
  Country: None (occurrence: None)
  Receive Date: 20070504
  Receipt Date: 20070425
  Transmission Date: 20071010
  Serious: Yes (Life-Threatening, Hospitalization)
  Sender: FDA-Public Use
  Company Number: SA-ROCHE-494708

PATIENT
  Age: 26 Year
  Sex: Male
  Weight: 60 kg

DRUGS (1)
  1. ROACCUTANE [Suspect]
     Route: 048
     Dates: start: 20070101, end: 20070306

REACTIONS (1)
  - VENOUS OCCLUSION [None]
